FAERS Safety Report 21547490 (Version 1)
Quarter: 2022Q4

REPORT INFORMATION
  Report Type: Spontaneous
  Country: CA (occurrence: CA)
  Receive Date: 20221103
  Receipt Date: 20221103
  Transmission Date: 20230112
  Serious: Yes (Other)
  Sender: FDA-Public Use
  Company Number: CA-GLAXOSMITHKLINE-CA2022AMR154462

PATIENT
  Age: 23 Year
  Sex: Female

DRUGS (6)
  1. CEFUROXIME [Suspect]
     Active Substance: CEFUROXIME
     Indication: Pericoronitis
     Dosage: UNK
     Route: 065
  2. BETAMETHASONE [Suspect]
     Active Substance: BETAMETHASONE
     Indication: Product used for unknown indication
     Dosage: UNK
     Route: 030
  3. AMPHOTERICIN B [Suspect]
     Active Substance: AMPHOTERICIN B
     Indication: Prophylaxis
     Dosage: UNK
     Route: 065
  4. CYTARABINE [Suspect]
     Active Substance: CYTARABINE
     Indication: Drug therapy
     Dosage: 1000 MG/M2, QD (POWDER FOR SOLUTION INTRATHECAL)
     Route: 065
  5. MEROPENEM [Suspect]
     Active Substance: MEROPENEM
     Indication: Pericoronitis
     Dosage: UNK (POWDER FOR SOLUTION INTRAVENOUS)
     Route: 065
  6. METRONIDAZOLE [Suspect]
     Active Substance: METRONIDAZOLE
     Indication: Pericoronitis
     Dosage: UNK
     Route: 065

REACTIONS (3)
  - Premature delivery [Unknown]
  - Live birth [Unknown]
  - Exposure during pregnancy [Unknown]
